FAERS Safety Report 17576410 (Version 1)
Quarter: 2020Q1

REPORT INFORMATION
  Report Type: Spontaneous
  Country: US (occurrence: US)
  Receive Date: 20200318
  Receipt Date: 20200318
  Transmission Date: 20200409
  Serious: Yes (Hospitalization)
  Sender: FDA-Public Use
  Company Number: None

PATIENT
  Age: 41 Year
  Sex: Female

DRUGS (13)
  1. IRON [Concomitant]
     Active Substance: IRON
  2. PRENATAL [Concomitant]
     Active Substance: VITAMINS
  3. VITAMIN B6 [Concomitant]
     Active Substance: PYRIDOXINE HYDROCHLORIDE
  4. HUMIRA [Suspect]
     Active Substance: ADALIMUMAB
     Indication: RHEUMATOID ARTHRITIS
     Route: 058
     Dates: start: 20190517
  5. CLARITIN [Concomitant]
     Active Substance: LORATADINE
  6. TYLENOL [Concomitant]
     Active Substance: ACETAMINOPHEN
  7. VOLTAREN [Concomitant]
     Active Substance: DICLOFENAC SODIUM
  8. DULOXETINE. [Concomitant]
     Active Substance: DULOXETINE
  9. METHYLPRED [Concomitant]
     Active Substance: METHYLPREDNISOLONE
  10. PRILOSEC OTC [Concomitant]
     Active Substance: OMEPRAZOLE MAGNESIUM
  11. ACIDOPHILUS [Concomitant]
     Active Substance: LACTOBACILLUS ACIDOPHILUS
  12. VIMOVO [Concomitant]
     Active Substance: ESOMEPRAZOLE MAGNESIUM\NAPROXEN
  13. VITAMIN C [Concomitant]
     Active Substance: ASCORBIC ACID

REACTIONS (2)
  - Condition aggravated [None]
  - Fatigue [None]

NARRATIVE: CASE EVENT DATE: 20200228
